FAERS Safety Report 20768244 (Version 1)
Quarter: 2022Q2

REPORT INFORMATION
  Report Type: Spontaneous
  Country: US (occurrence: US)
  Receive Date: 20220429
  Receipt Date: 20220429
  Transmission Date: 20220721
  Serious: No
  Sender: FDA-Public Use
  Company Number: US-MAYNE PHARMA-2021MYN000663

PATIENT
  Age: 73 Year
  Sex: Male

DRUGS (1)
  1. FLUOROURACIL [Suspect]
     Active Substance: FLUOROURACIL
     Indication: Basal cell carcinoma
     Dosage: UNK UNK, Q12H
     Route: 061
     Dates: start: 20211123, end: 20211127

REACTIONS (6)
  - Application site erythema [Unknown]
  - Application site pain [Unknown]
  - Application site pruritus [Unknown]
  - Application site haemorrhage [Unknown]
  - Application site exfoliation [Unknown]
  - Application site fissure [Unknown]

NARRATIVE: CASE EVENT DATE: 20211127
